FAERS Safety Report 8900393 (Version 1)
Quarter: 2012Q4

REPORT INFORMATION
  Report Type: 
  Country: US (occurrence: US)
  Receive Date: 20121109
  Receipt Date: 20121109
  Transmission Date: 20130627
  Serious: No
  Sender: FDA-Public Use
  Company Number: US-PFIZER INC-2012278922

PATIENT
  Age: 58 Year
  Sex: Female

DRUGS (3)
  1. PRISTIQ [Suspect]
     Indication: DEPRESSION
     Dosage: 50 mg, 1x/day
     Route: 048
  2. CYMBALTA [Concomitant]
     Dosage: 30 mg, UNK
  3. ESTROGENS [Concomitant]
     Dosage: UNK

REACTIONS (1)
  - Drug screen positive [Unknown]
